FAERS Safety Report 9305501 (Version 1)
Quarter: 2012Q4

REPORT INFORMATION
  Report Type: Spontaneous
  Country: US (occurrence: None)
  Receive Date: 20121211
  Receipt Date: 20121211
  Transmission Date: 20130627
  Serious: Yes (Other)
  Sender: FDA-Public Use
  Company Number: ACO_33112_2012

PATIENT
  Age: 85 Year
  Sex: Female

DRUGS (1)
  1. AMPYRA (DALFAMPRIDINE) TABLET, 10MG [Suspect]
     Indication: WALKING DIFFICULTY
     Dates: start: 201211, end: 201211

REACTIONS (1)
  - Convulsion [None]
